FAERS Safety Report 11620976 (Version 1)
Quarter: 2015Q4

REPORT INFORMATION
  Report Type: Spontaneous
  Country: TN (occurrence: TN)
  Receive Date: 20151012
  Receipt Date: 20151012
  Transmission Date: 20160304
  Serious: Yes (Other)
  Sender: FDA-Public Use
  Company Number: TN-GLAXOSMITHKLINE-TN2015GSK142875

PATIENT
  Age: 52 Year
  Sex: Male

DRUGS (4)
  1. GLIMEPIRIDE. [Suspect]
     Active Substance: GLIMEPIRIDE
     Indication: TYPE 2 DIABETES MELLITUS
     Dosage: 1 MG, QD
     Dates: start: 201110
  2. METFORMIN [Concomitant]
     Active Substance: METFORMIN HYDROCHLORIDE
     Indication: TYPE 2 DIABETES MELLITUS
     Dosage: 1500 MG, QD
  3. GLIMEPIRIDE. [Suspect]
     Active Substance: GLIMEPIRIDE
     Dosage: UNK
     Route: 048
     Dates: start: 201301
  4. METFORMIN [Concomitant]
     Active Substance: METFORMIN HYDROCHLORIDE
     Dosage: UNK
     Dates: start: 20121222

REACTIONS (11)
  - Burning sensation [Recovered/Resolved]
  - Dysuria [Unknown]
  - Penile ulceration [Unknown]
  - Anal ulcer [Unknown]
  - Dyspareunia [Unknown]
  - Lichen planus [Recovered/Resolved]
  - Oral lichen planus [Recovered/Resolved]
  - Oral mucosal erythema [Recovered/Resolved]
  - Pain [Unknown]
  - Tongue ulceration [Recovered/Resolved]
  - Lymphocytic infiltration [Unknown]

NARRATIVE: CASE EVENT DATE: 20121101
